FAERS Safety Report 8008294-0 (Version None)
Quarter: 2011Q4

REPORT INFORMATION
  Report Type: 
  Country: None (occurrence: None)
  Receive Date: 20111227
  Receipt Date: 20111223
  Transmission Date: 20120403
  Serious: Yes (Hospitalization)
  Sender: FDA-Public Use
  Company Number: IT-ROCHE-1022604

PATIENT

DRUGS (4)
  1. AVASTIN [Suspect]
     Indication: COLON CANCER
     Route: 042
     Dates: start: 20110802, end: 20110817
  2. FLUOROURACIL [Concomitant]
     Route: 041
  3. FLUOROURACIL [Concomitant]
     Route: 042
  4. OXALIPLATIN [Concomitant]
     Route: 042

REACTIONS (6)
  - VOMITING [None]
  - DEHYDRATION [None]
  - NAUSEA [None]
  - DIARRHOEA [None]
  - NEUTROPENIA [None]
  - RENAL FAILURE [None]
